FAERS Safety Report 7916093 (Version 3)
Quarter: 2014Q1

REPORT INFORMATION
  Report Type: Spontaneous
  Country: US (occurrence: US)
  Receive Date: 20110427
  Receipt Date: 20140214
  Transmission Date: 20141002
  Serious: Yes (Hospitalization)
  Sender: FDA-Public Use
  Company Number: US-BAYER-2010-002166

PATIENT
  Age: 18 Year
  Sex: Female
  Weight: 76.19 kg

DRUGS (2)
  1. YASMIN [Suspect]
     Indication: ACNE
     Dosage: UNK
     Dates: start: 200509, end: 200707
  2. YAZ [Suspect]
     Indication: ACNE
     Dosage: UNK
     Dates: start: 200509, end: 200707

REACTIONS (8)
  - Gallbladder disorder [None]
  - Cholecystitis chronic [None]
  - Gastrointestinal disorder [None]
  - Anxiety [None]
  - Anhedonia [None]
  - Quality of life decreased [None]
  - Pain [None]
  - Fear [None]
